FAERS Safety Report 7280344-9 (Version None)
Quarter: 2011Q1

REPORT INFORMATION
  Report Type: 
  Country: None (occurrence: None)
  Receive Date: 20110208
  Receipt Date: 20110127
  Transmission Date: 20110831
  Serious: Yes (Hospitalization, Other)
  Sender: FDA-Public Use
  Company Number: US-ELI_LILLY_AND_COMPANY-US201006005089

PATIENT
  Sex: Female
  Weight: 61.678 kg

DRUGS (5)
  1. TRAMADOL HCL [Concomitant]
  2. CELEBREX [Concomitant]
     Indication: ARTHRITIS
  3. FORTEO [Suspect]
     Dosage: 20 UG, DAILY (1/D)
     Dates: end: 20101217
  4. FORTEO [Suspect]
     Indication: OSTEOPOROSIS
     Dosage: 20 UG, DAILY (1/D)
     Route: 058
     Dates: start: 20090801, end: 20101001
  5. CALCIUM 600 PLUS VITAMIN D [Concomitant]

REACTIONS (5)
  - INFECTION [None]
  - CALCULUS URETERIC [None]
  - PYREXIA [None]
  - RASH MACULAR [None]
  - HYPERCALCAEMIA [None]
